FAERS Safety Report 11088511 (Version 3)
Quarter: 2015Q2

REPORT INFORMATION
  Report Type: Spontaneous
  Country: US (occurrence: US)
  Receive Date: 20150504
  Receipt Date: 20150612
  Transmission Date: 20150821
  Serious: Yes (Other)
  Sender: FDA-Public Use
  Company Number: US-TEVA-558765USA

PATIENT
  Sex: Female

DRUGS (1)
  1. DULOXETINE [Suspect]
     Active Substance: DULOXETINE
     Indication: NEURALGIA
     Route: 048
     Dates: start: 2014

REACTIONS (27)
  - Skin odour abnormal [Unknown]
  - Abasia [Unknown]
  - Suicidal ideation [Unknown]
  - Eye pain [Unknown]
  - Product substitution issue [Unknown]
  - Pruritus [Unknown]
  - Pain in extremity [Unknown]
  - Surgery [Unknown]
  - Dizziness [Unknown]
  - Hyperhidrosis [Unknown]
  - Myalgia [Unknown]
  - Drug ineffective [Unknown]
  - Decreased appetite [Unknown]
  - Migraine [Unknown]
  - Chromaturia [Not Recovered/Not Resolved]
  - Feeling abnormal [Unknown]
  - Arthralgia [Unknown]
  - Urticaria [Unknown]
  - Muscle twitching [Unknown]
  - Dyskinesia [Unknown]
  - Dehydration [Unknown]
  - Weight decreased [Unknown]
  - Urine odour abnormal [Unknown]
  - Vision blurred [Not Recovered/Not Resolved]
  - Stomatitis [Unknown]
  - Tremor [Unknown]
  - Spinal pain [Unknown]

NARRATIVE: CASE EVENT DATE: 2014
